FAERS Safety Report 8490328-0 (Version None)
Quarter: 2012Q3

REPORT INFORMATION
  Report Type: 
  Country: None (occurrence: None)
  Receive Date: 20120705
  Receipt Date: 20120628
  Transmission Date: 20120928
  Serious: Yes (Other)
  Sender: FDA-Public Use
  Company Number: US-JNJFOC-20120700585

PATIENT
  Age: 45 Year
  Sex: Male

DRUGS (4)
  1. INVEGA SUSTENNA [Suspect]
     Indication: SCHIZOAFFECTIVE DISORDER
     Route: 030
     Dates: start: 20120315
  2. COGENTIN [Concomitant]
     Dosage: 0.5-1 MG TABLET TWICE A DAY AS NEEDED
     Route: 048
  3. LAMICTAL [Concomitant]
     Route: 048
  4. CELEXA [Concomitant]
     Dosage: 0.5-1 MG TWICE A DAY AS NEEDED
     Route: 048

REACTIONS (1)
  - PRIAPISM [None]
